FAERS Safety Report 7412761-8 (Version None)
Quarter: 2011Q2

REPORT INFORMATION
  Report Type: 
  Country: None (occurrence: None)
  Receive Date: 20110413
  Receipt Date: 20110408
  Transmission Date: 20111010
  Serious: Yes (Hospitalization, Congenital Anomaly)
  Sender: FDA-Public Use
  Company Number: A0918927A

PATIENT
  Sex: Female
  Weight: 1.1 kg

DRUGS (4)
  1. CELESTONE [Concomitant]
  2. PAROXETINE HCL [Suspect]
     Indication: DEPRESSION
     Dosage: 20MG UNKNOWN
     Route: 048
  3. AMPICILLIN [Concomitant]
  4. PAXIL [Suspect]
     Indication: DEPRESSION
     Route: 064

REACTIONS (3)
  - PULMONARY ARTERY STENOSIS CONGENITAL [None]
  - ATRIAL SEPTAL DEFECT [None]
  - DRUG EXPOSURE DURING PREGNANCY [None]
